FAERS Safety Report 22617872 (Version 1)
Quarter: 2023Q2

REPORT INFORMATION
  Report Type: Spontaneous
  Country: DE (occurrence: DE)
  Receive Date: 20230620
  Receipt Date: 20230620
  Transmission Date: 20230722
  Serious: No
  Sender: FDA-Public Use
  Company Number: DE-PFM-2022-06686

PATIENT
  Age: 5 Month
  Sex: Female
  Weight: 7.8 kg

DRUGS (3)
  1. PROPRANOLOL HYDROCHLORIDE [Suspect]
     Active Substance: PROPRANOLOL HYDROCHLORIDE
     Indication: Haemangioma
     Dosage: 22 ML, DAILY (2X11 ML; EVERYDAY)
     Route: 048
     Dates: start: 20220413
  2. LIMOSILACTOBACILLUS FERMENTUM [Suspect]
     Active Substance: LIMOSILACTOBACILLUS FERMENTUM
     Indication: Breast engorgement
     Dosage: 1 DF, DAILY IN MORNING
     Route: 065
     Dates: start: 20220601, end: 20220605
  3. Lora [Concomitant]
     Indication: Product used for unknown indication
     Dosage: UNK
     Route: 065
     Dates: start: 202201, end: 202205

REACTIONS (2)
  - Rash macular [Recovered/Resolved]
  - Food interaction [Unknown]

NARRATIVE: CASE EVENT DATE: 20220601
